FAERS Safety Report 25716549 (Version 2)
Quarter: 2025Q3

REPORT INFORMATION
  Report Type: Report from Study
  Country: CL (occurrence: CL)
  Receive Date: 20250822
  Receipt Date: 20250915
  Transmission Date: 20251020
  Serious: No
  Sender: ALEXION PHARMACEUTICALS
  Company Number: CL-AstraZeneca-CH-00933915A

PATIENT
  Age: 8 Year
  Sex: Male

DRUGS (3)
  1. BUDESONIDE\FORMOTEROL [Suspect]
     Active Substance: BUDESONIDE\FORMOTEROL
     Indication: Asthma
     Dosage: 80 MICROGRAM PER INHALATION, QD
     Dates: start: 2022
  2. Despex [Concomitant]
     Route: 065
  3. Pluster [Concomitant]
     Route: 065

REACTIONS (2)
  - Asthma [Recovered/Resolved]
  - Product use issue [Unknown]

NARRATIVE: CASE EVENT DATE: 20250728
